FAERS Safety Report 18774283 (Version 1)
Quarter: 2021Q1

REPORT INFORMATION
  Report Type: Report from Study
  Country: IN (occurrence: IN)
  Receive Date: 20210122
  Receipt Date: 20210122
  Transmission Date: 20210419
  Serious: Yes (Death, Other)
  Sender: FDA-Public Use
  Company Number: IN-BRISTOL-MYERS SQUIBB COMPANY-BMS-2021-006153

PATIENT
  Age: 68 Year
  Sex: Male

DRUGS (1)
  1. DASATINIB. [Suspect]
     Active Substance: DASATINIB
     Indication: CHRONIC MYELOID LEUKAEMIA
     Dosage: 100 MG , FREQUENCY WAS 1
     Route: 048
     Dates: start: 20200318, end: 20201018

REACTIONS (1)
  - Death [Fatal]

NARRATIVE: CASE EVENT DATE: 20201029
